FAERS Safety Report 8198076-1 (Version None)
Quarter: 2012Q1

REPORT INFORMATION
  Report Type: 
  Country: None (occurrence: None)
  Receive Date: 20120309
  Receipt Date: 20111227
  Transmission Date: 20120608
  Serious: Yes (Other)
  Sender: FDA-Public Use
  Company Number: US-AMGEN-USASP2011012633

PATIENT
  Sex: Female

DRUGS (5)
  1. MACRODANTIN [Concomitant]
  2. MULTAQ [Concomitant]
  3. VITAMIN C                          /00008001/ [Concomitant]
  4. VITAMIN D [Concomitant]
  5. PROLIA [Suspect]
     Indication: OSTEOPOROSIS POSTMENOPAUSAL
     Dosage: UNK
     Dates: start: 20101001

REACTIONS (9)
  - PRURITUS [None]
  - ATRIAL FIBRILLATION [None]
  - INJECTION SITE REACTION [None]
  - INJECTION SITE PRURITUS [None]
  - TOOTH DISORDER [None]
  - VERTIGO POSITIONAL [None]
  - TOOTHACHE [None]
  - ECZEMA [None]
  - DERMATITIS [None]
